FAERS Safety Report 4855019-3 (Version None)
Quarter: 2005Q4

REPORT INFORMATION
  Report Type: 
  Country: None (occurrence: None)
  Receive Date: 20051214
  Receipt Date: 20051207
  Transmission Date: 20060501
  Serious: Yes (Life-Threatening)
  Sender: FDA-Public Use
  Company Number: 2005165392

PATIENT
  Age: 75 Year
  Sex: Male

DRUGS (1)
  1. ZOLOFT [Suspect]
     Indication: ILL-DEFINED DISORDER
     Dosage: (1 IN 1 D), ORAL
     Route: 048
     Dates: start: 20051117, end: 20051206

REACTIONS (5)
  - ACUTE CORONARY SYNDROME [None]
  - AGITATION [None]
  - DRUG INEFFECTIVE [None]
  - ELECTROCARDIOGRAM ABNORMAL [None]
  - TROPONIN INCREASED [None]
